FAERS Safety Report 21940253 (Version 1)
Quarter: 2023Q1

REPORT INFORMATION
  Report Type: Report from Study
  Country: US (occurrence: US)
  Receive Date: 20230201
  Receipt Date: 20230201
  Transmission Date: 20230418
  Serious: No
  Sender: FDA-Public Use
  Company Number: US-EXELIXIS-CABO-22050208

PATIENT
  Age: 26 Year
  Sex: Male

DRUGS (2)
  1. CABOMETYX [Suspect]
     Active Substance: CABOZANTINIB S-MALATE
     Indication: Malignant connective tissue neoplasm
     Dosage: 60 MG, QD
     Route: 048
     Dates: start: 20220311
  2. CABOMETYX [Suspect]
     Active Substance: CABOZANTINIB S-MALATE
     Indication: Soft tissue sarcoma
     Dosage: 60 MG, QD
     Route: 048

REACTIONS (10)
  - Peripheral swelling [Recovering/Resolving]
  - Diarrhoea [Unknown]
  - Nausea [Recovering/Resolving]
  - Fatigue [Recovering/Resolving]
  - Decreased appetite [Unknown]
  - Taste disorder [Unknown]
  - Weight decreased [Unknown]
  - Stomatitis [Unknown]
  - Product dose omission issue [Unknown]
  - Off label use [Unknown]

NARRATIVE: CASE EVENT DATE: 20220301
